FAERS Safety Report 6511349-0 (Version None)
Quarter: 2009Q4

REPORT INFORMATION
  Report Type: 
  Country: None (occurrence: None)
  Receive Date: 20091222
  Receipt Date: 20090303
  Transmission Date: 20100525
  Serious: No
  Sender: FDA-Public Use
  Company Number: US-ASTRAZENECA-2009UW05767

PATIENT
  Age: 78 Year
  Sex: Female
  Weight: 56.7 kg

DRUGS (5)
  1. CRESTOR [Suspect]
     Indication: BLOOD CHOLESTEROL INCREASED
     Route: 048
     Dates: start: 20090215
  2. ZETIA [Concomitant]
     Indication: BLOOD CHOLESTEROL INCREASED
  3. MULTI-VITAMINS [Concomitant]
  4. CALCIUM [Concomitant]
  5. METAMUCIL [Concomitant]

REACTIONS (3)
  - CONSTIPATION [None]
  - INFLUENZA LIKE ILLNESS [None]
  - PAIN [None]
